FAERS Safety Report 22333456 (Version 2)
Quarter: 2023Q2

REPORT INFORMATION
  Report Type: Spontaneous
  Country: BR (occurrence: BR)
  Receive Date: 20230517
  Receipt Date: 20230526
  Transmission Date: 20230722
  Serious: Yes (Other)
  Sender: FDA-Public Use
  Company Number: BR-BAXTER-2023BAX022009

PATIENT
  Age: 42 Year
  Sex: Female
  Weight: 56 kg

DRUGS (2)
  1. IRON [Suspect]
     Active Substance: IRON
     Indication: Blood iron decreased
     Dosage: 2 AMPOULES DILUTED IN 250 ML OF SALINE SOLUTION IN A SINGLE DOSE
     Route: 042
     Dates: start: 20230502, end: 20230502
  2. SODIUM CHLORIDE [Suspect]
     Active Substance: SODIUM CHLORIDE
     Indication: Medication dilution
     Dosage: 250 ML IN A SINGLE DOSE
     Route: 042
     Dates: start: 20230502, end: 20230502

REACTIONS (3)
  - Diarrhoea [Recovered/Resolved]
  - Pruritus [Recovered/Resolved]
  - Product administration error [Unknown]

NARRATIVE: CASE EVENT DATE: 20230502
